FAERS Safety Report 6783706-9 (Version None)
Quarter: 2010Q2

REPORT INFORMATION
  Report Type: 
  Country: None (occurrence: None)
  Receive Date: 20100622
  Receipt Date: 20100614
  Transmission Date: 20101027
  Serious: Yes (Hospitalization)
  Sender: FDA-Public Use
  Company Number: BR-ASTRAZENECA-2010SE27850

PATIENT
  Age: 98 Year
  Sex: Female
  Weight: 45 kg

DRUGS (3)
  1. CRESTOR [Suspect]
     Indication: HYPERCHOLESTEROLAEMIA
     Route: 048
     Dates: start: 20060101
  2. SOMALGIN [Concomitant]
     Indication: CARDIOVASCULAR DISORDER
     Dosage: ONCE DAILY
     Route: 048
     Dates: start: 20050101
  3. VASTAREL [Concomitant]
     Dosage: TWO TIMES A DAY
     Route: 048
     Dates: start: 20060101

REACTIONS (4)
  - HALLUCINATION [None]
  - INSOMNIA [None]
  - OEDEMA PERIPHERAL [None]
  - RESTLESSNESS [None]
